FAERS Safety Report 21766725 (Version 1)
Quarter: 2022Q4

REPORT INFORMATION
  Report Type: Spontaneous
  Country: FR (occurrence: FR)
  Receive Date: 20221222
  Receipt Date: 20221222
  Transmission Date: 20230113
  Serious: Yes (Death)
  Sender: FDA-Public Use
  Company Number: None

PATIENT
  Age: 60 Year
  Sex: Male

DRUGS (2)
  1. DOXORUBICIN HYDROCHLORIDE [Suspect]
     Active Substance: DOXORUBICIN HYDROCHLORIDE
     Indication: Angiosarcoma
     Dosage: 120 MG
     Route: 042
     Dates: start: 20221201, end: 20221201
  2. IFOSFAMIDE [Suspect]
     Active Substance: IFOSFAMIDE
     Indication: Angiosarcoma
     Dosage: 4800MG DAY1 AND 4400MG DAY2
     Route: 042
     Dates: start: 20221201, end: 20221203

REACTIONS (1)
  - Encephalitis [Fatal]

NARRATIVE: CASE EVENT DATE: 20221203
